FAERS Safety Report 9454250 (Version 3)
Quarter: 2013Q4

REPORT INFORMATION
  Report Type: Spontaneous
  Country: FR (occurrence: FR)
  Receive Date: 20130812
  Receipt Date: 20131114
  Transmission Date: 20140711
  Serious: Yes (Hospitalization, Other)
  Sender: FDA-Public Use
  Company Number: FR-TEVA-416667ISR

PATIENT
  Sex: Female

DRUGS (11)
  1. COPAXONE [Suspect]
     Indication: RELAPSING-REMITTING MULTIPLE SCLEROSIS
     Dates: start: 20120921
  2. OROKEN [Concomitant]
     Indication: URINARY TRACT INFECTION
     Dosage: MONDAY-FRIDAY FIRST WEEK
  3. OFLOCET [Concomitant]
     Indication: URINARY TRACT INFECTION
     Dosage: MONDAY-FRIDAY SECOND WEEK
  4. BACTRIM [Concomitant]
     Indication: URINARY TRACT INFECTION
     Dosage: MONDAY-FRIDAY THIRD WEEK
  5. TANGANIL [Concomitant]
     Indication: VERTIGO
  6. BETASERC [Concomitant]
     Indication: VERTIGO
  7. VOLTARENE [Concomitant]
     Indication: BACK DISORDER
  8. METEOXANE [Concomitant]
     Indication: FLATULENCE
     Dosage: 3 DOSAGE FORMS DAILY;
  9. INEXIUM [Concomitant]
     Indication: GASTROINTESTINAL DISORDER
  10. XATRAL [Concomitant]
     Indication: URINARY TRACT DISORDER
  11. DAFALGAN 1MG [Concomitant]
     Indication: HEADACHE

REACTIONS (7)
  - Urinary tract infection [Unknown]
  - Nausea [Unknown]
  - Vertigo [Unknown]
  - Headache [Unknown]
  - Multiple sclerosis relapse [Recovered/Resolved]
  - Visual impairment [Unknown]
  - Chemical cystitis [Unknown]
